FAERS Safety Report 15886419 (Version 3)
Quarter: 2020Q2

REPORT INFORMATION
  Report Type: Report from Study
  Country: US (occurrence: US)
  Receive Date: 20190129
  Receipt Date: 20200522
  Transmission Date: 20200713
  Serious: Yes (Other)
  Sender: FDA-Public Use
  Company Number: PHHY2017US122250

PATIENT
  Age: 35 Year
  Sex: Female

DRUGS (1)
  1. GILENYA [Suspect]
     Active Substance: FINGOLIMOD HYDROCHLORIDE
     Indication: MULTIPLE SCLEROSIS
     Dosage: UNK, QD
     Route: 048

REACTIONS (9)
  - Blood pressure increased [Unknown]
  - Solar lentigo [Not Recovered/Not Resolved]
  - Hyperkeratosis [Recovered/Resolved]
  - Melanocytic naevus [Not Recovered/Not Resolved]
  - Lymphocyte count decreased [Unknown]
  - White blood cell count decreased [Unknown]
  - Gingivitis [Unknown]
  - Vertigo positional [Unknown]
  - Fibrous histiocytoma [Not Recovered/Not Resolved]

NARRATIVE: CASE EVENT DATE: 20160922
